FAERS Safety Report 26201656 (Version 1)
Quarter: 2025Q4

REPORT INFORMATION
  Report Type: Spontaneous
  Country: US (occurrence: US)
  Receive Date: 20251226
  Receipt Date: 20251226
  Transmission Date: 20260117
  Serious: No
  Sender: RIGEL PHARMACEUTICALS
  Company Number: US-RIGEL-20251100049

PATIENT
  Sex: Female
  Weight: 74.843 kg

DRUGS (1)
  1. REZLIDHIA [Suspect]
     Active Substance: OLUTASIDENIB
     Indication: Acute myeloid leukaemia
     Dosage: 150 MG, BID
     Route: 048
     Dates: start: 20251014, end: 2025

REACTIONS (2)
  - Adverse event [Unknown]
  - Malaise [Unknown]

NARRATIVE: CASE EVENT DATE: 20250101
